FAERS Safety Report 6922927-9 (Version None)
Quarter: 2010Q3

REPORT INFORMATION
  Report Type: 
  Country: None (occurrence: None)
  Receive Date: 20100813
  Receipt Date: 20100803
  Transmission Date: 20110219
  Serious: Yes (Other)
  Sender: FDA-Public Use
  Company Number: PHHY2010JP51555

PATIENT
  Sex: Male
  Weight: 57 kg

DRUGS (14)
  1. AFINITOR [Suspect]
     Indication: METASTATIC RENAL CELL CARCINOMA
     Dosage: 5 MG DAILY DOSE
     Route: 048
     Dates: start: 20100524, end: 20100608
  2. AFINITOR [Suspect]
     Dosage: 10 MG DAILY
     Route: 048
     Dates: start: 20100609
  3. SUNITINIB MALATE [Concomitant]
     Indication: METASTATIC RENAL CELL CARCINOMA
     Dosage: 50 MG, UNK
     Route: 048
     Dates: start: 20090609, end: 20100316
  4. SORAFENIB TOSILATE [Concomitant]
     Indication: METASTATIC RENAL CELL CARCINOMA
     Dosage: 800 MG, UNK
     Route: 048
     Dates: start: 20100407, end: 20100518
  5. MS CONTIN [Concomitant]
     Indication: METASTATIC RENAL CELL CARCINOMA
     Dosage: 20 MG, UNK
     Route: 048
     Dates: start: 20090515
  6. GLYCYRON [Concomitant]
     Indication: PROPHYLAXIS
     Dosage: 3 DF, UNK
     Route: 048
     Dates: start: 20090602, end: 20090616
  7. NABOAL SR [Concomitant]
     Indication: METASTATIC RENAL CELL CARCINOMA
     Dosage: 75 MG, UNK
     Route: 048
     Dates: start: 20090528
  8. LAC B [Concomitant]
     Dosage: 3.0 G, OFTEN
     Route: 048
     Dates: start: 20100416, end: 20100604
  9. LENDORMIN D [Concomitant]
     Indication: METASTATIC RENAL CELL CARCINOMA
     Dosage: 0.25 MG, UNK
     Route: 048
     Dates: start: 20090515
  10. METHYCOBAL [Concomitant]
     Indication: METASTATIC RENAL CELL CARCINOMA
     Dosage: 1500 UG, UNK
     Route: 048
     Dates: start: 20100218, end: 20100612
  11. MUCODYNE [Concomitant]
     Indication: METASTATIC RENAL CELL CARCINOMA
     Dosage: 750 MG, UNK
     Route: 048
     Dates: start: 20100518, end: 20100604
  12. AMLODIPINE BESYLATE [Concomitant]
     Dosage: 5 MG, UNK
     Route: 048
     Dates: start: 20090616, end: 20100524
  13. TAKEPRON [Concomitant]
     Indication: METASTATIC RENAL CELL CARCINOMA
     Dosage: 15 MG, UNK
     Route: 048
     Dates: start: 20090515, end: 20100618
  14. DECADRON [Concomitant]
     Indication: METASTATIC RENAL CELL CARCINOMA
     Dosage: 1 MG, UNK
     Route: 048
     Dates: start: 20100331

REACTIONS (4)
  - ANAEMIA [None]
  - BLOOD ALKALINE PHOSPHATASE INCREASED [None]
  - GAMMA-GLUTAMYLTRANSFERASE INCREASED [None]
  - MALIGNANT NEOPLASM PROGRESSION [None]
